FAERS Safety Report 8286403-6 (Version None)
Quarter: 2012Q2

REPORT INFORMATION
  Report Type: 
  Country: None (occurrence: None)
  Receive Date: 20120411
  Receipt Date: 20120326
  Transmission Date: 20120825
  Serious: Yes (Other)
  Sender: FDA-Public Use
  Company Number: FK201200953

PATIENT
  Age: 70 Year
  Sex: Female

DRUGS (6)
  1. TORSEMIDE [Suspect]
     Indication: AORTIC VALVE REPLACEMENT
  2. PHENPROCOUMONE (PHENPROCOUMON) [Suspect]
     Indication: AORTIC VALVE REPLACEMENT
  3. BISOPROLOL FUMARATE [Concomitant]
  4. AMIODARONE HCL [Suspect]
     Indication: AORTIC VALVE REPLACEMENT
     Dosage: UNK
  5. ASPIRIN [Concomitant]
  6. LOSARTAN POTASSIUM [Suspect]
     Indication: AORTIC VALVE REPLACEMENT

REACTIONS (2)
  - IMPAIRED HEALING [None]
  - CUTANEOUS LUPUS ERYTHEMATOSUS [None]
